FAERS Safety Report 25469757 (Version 1)
Quarter: 2025Q2

REPORT INFORMATION
  Report Type: Spontaneous
  Country: CZ (occurrence: CZ)
  Receive Date: 20250623
  Receipt Date: 20250623
  Transmission Date: 20250717
  Serious: Yes (Life-Threatening, Hospitalization, Other)
  Sender: MERCK SHARP & DOHME LLC
  Company Number: None

PATIENT
  Age: 69 Year
  Sex: Female
  Weight: 71 kg

DRUGS (4)
  1. KEYTRUDA [Suspect]
     Active Substance: PEMBROLIZUMAB
     Indication: Nasal sinus cancer
     Dosage: FLAT DOSE 200 MG EVERY 3 WEEKS, TOTAL 23 CYCLES (FIRST 6 CYCLES TOGETHER WITH CHEMOTHERAPY)
     Route: 042
     Dates: start: 20231110, end: 20250422
  2. CARZAP HCT [Concomitant]
  3. LEVOTHYROXINE SODIUM [Concomitant]
     Active Substance: LEVOTHYROXINE SODIUM
  4. TULIP [Concomitant]

REACTIONS (2)
  - Gastroenteritis clostridial [Recovering/Resolving]
  - Clostridium colitis [Recovering/Resolving]

NARRATIVE: CASE EVENT DATE: 20250519
